FAERS Safety Report 18547507 (Version 4)
Quarter: 2022Q1

REPORT INFORMATION
  Report Type: Spontaneous
  Country: US (occurrence: US)
  Receive Date: 20201125
  Receipt Date: 20220307
  Transmission Date: 20220424
  Serious: No
  Sender: FDA-Public Use
  Company Number: US-PFIZER INC-2020463324

PATIENT
  Age: 49 Year
  Sex: Female

DRUGS (1)
  1. EUCRISA [Suspect]
     Active Substance: CRISABOROLE
     Dosage: UNK, 2X/DAY
     Route: 061

REACTIONS (4)
  - Skin fissures [Unknown]
  - Pain of skin [Unknown]
  - Dry skin [Unknown]
  - Pruritus [Unknown]
